FAERS Safety Report 21507317 (Version 3)
Quarter: 2023Q1

REPORT INFORMATION
  Report Type: Report from Study
  Country: CO (occurrence: CO)
  Receive Date: 20221026
  Receipt Date: 20230126
  Transmission Date: 20230418
  Serious: Yes (Other)
  Sender: FDA-Public Use
  Company Number: CO-NOVARTISPH-PHHY2017CO016962

PATIENT
  Age: 47 Year
  Sex: Female
  Weight: 38 kg

DRUGS (7)
  1. AFINITOR [Suspect]
     Active Substance: EVEROLIMUS
     Indication: Tuberous sclerosis complex
     Dosage: 5 MG, QD
     Route: 048
     Dates: start: 20160710
  2. AFINITOR [Suspect]
     Active Substance: EVEROLIMUS
     Indication: Breast cancer
     Dosage: 10 MG, QD
     Route: 048
     Dates: start: 20170101
  3. AFINITOR [Suspect]
     Active Substance: EVEROLIMUS
     Dosage: 10 MG, QD
     Route: 048
     Dates: start: 20170102, end: 201701
  4. AFINITOR [Suspect]
     Active Substance: EVEROLIMUS
     Dosage: 5 MG, QD
     Route: 048
  5. AFINITOR [Suspect]
     Active Substance: EVEROLIMUS
     Dosage: 5 MG, QOD (EVERY OTHER DAY)
     Route: 048
  6. AFINITOR [Suspect]
     Active Substance: EVEROLIMUS
     Dosage: 1 DOSAGE FORM, QOD (EVERY 48 HOURS/  EVERY OTHER DAY)
     Route: 048
  7. AFINITOR [Suspect]
     Active Substance: EVEROLIMUS
     Dosage: 2.5 MG, QD
     Route: 048

REACTIONS (36)
  - Neoplasm progression [Unknown]
  - Anal ulcer [Unknown]
  - Oral mucosal blistering [Unknown]
  - Toxicity to various agents [Unknown]
  - Pain [Unknown]
  - Malaise [Unknown]
  - Genital pain [Unknown]
  - Pain in extremity [Unknown]
  - Skin disorder [Unknown]
  - Eating disorder [Unknown]
  - Vaginal mucosal blistering [Unknown]
  - Anorectal disorder [Unknown]
  - Ear pain [Unknown]
  - Bone pain [Unknown]
  - Nasal congestion [Unknown]
  - Eye inflammation [Unknown]
  - Hordeolum [Unknown]
  - Aphonia [Recovered/Resolved]
  - Aphasia [Recovering/Resolving]
  - Laryngitis [Recovered/Resolved]
  - Influenza [Unknown]
  - Depressed mood [Unknown]
  - Restless legs syndrome [Unknown]
  - Gait inability [Unknown]
  - Dysstasia [Unknown]
  - Headache [Unknown]
  - Stomatitis [Recovering/Resolving]
  - Mouth ulceration [Not Recovered/Not Resolved]
  - Nausea [Unknown]
  - Rash [Unknown]
  - Weight decreased [Unknown]
  - Acne [Not Recovered/Not Resolved]
  - Cough [Unknown]
  - Pyrexia [Unknown]
  - Dyspepsia [Unknown]
  - Inappropriate schedule of product administration [Unknown]

NARRATIVE: CASE EVENT DATE: 20170122
